FAERS Safety Report 5275758-2 (Version None)
Quarter: 2007Q1

REPORT INFORMATION
  Report Type: 
  Country: None (occurrence: None)
  Receive Date: 20070326
  Receipt Date: 20070319
  Transmission Date: 20070707
  Serious: Yes (Congenital Anomaly)
  Sender: FDA-Public Use
  Company Number: US-GLAXOSMITHKLINE-A0644331A

PATIENT

DRUGS (3)
  1. RETROVIR [Suspect]
     Dosage: 600MG PER DAY
  2. KALETRA [Concomitant]
     Dosage: 4TABS PER DAY
  3. DIDANOSINE [Concomitant]
     Dosage: 400MG PER DAY

REACTIONS (2)
  - COARCTATION OF THE AORTA [None]
  - DRUG EXPOSURE DURING PREGNANCY [None]
